FAERS Safety Report 5331314-9 (Version None)
Quarter: 2007Q2

REPORT INFORMATION
  Report Type: 
  Country: None (occurrence: None)
  Receive Date: 20070301
  Receipt Date: 20060522
  Transmission Date: 20071010
  Serious: Yes (Other)
  Sender: FDA-Public Use
  Company Number: 2602

PATIENT
  Age: 39 Year
  Sex: Female
  Weight: 79.3795 kg

DRUGS (2)
  1. AMNESTEEM [Suspect]
     Indication: ACNE
     Dosage: 30 MG MG QD PO
     Route: 048
     Dates: start: 20060101, end: 20060501
  2. AMNESTEEM [Suspect]
     Dosage: 20 MG BID PO
     Route: 048
     Dates: start: 20060501

REACTIONS (3)
  - BACK PAIN [None]
  - DRY SKIN [None]
  - MENSTRUATION IRREGULAR [None]
